FAERS Safety Report 22144528 (Version 1)
Quarter: 2023Q1

REPORT INFORMATION
  Report Type: Spontaneous
  Country: DE (occurrence: DE)
  Receive Date: 20230328
  Receipt Date: 20230328
  Transmission Date: 20230418
  Serious: Yes (Other)
  Sender: FDA-Public Use
  Company Number: DE-Desitin-2023-00632

PATIENT
  Age: 73 Year
  Sex: Male
  Weight: 70 kg

DRUGS (3)
  1. AMANTADINE [Suspect]
     Active Substance: AMANTADINE
     Indication: Parkinson^s disease
     Dosage: UNK
     Route: 048
  2. APOMORPHINE [Suspect]
     Active Substance: APOMORPHINE
     Indication: Parkinson^s disease
     Dosage: 200 MG
     Route: 058
  3. BENSERAZIDE HYDROCHLORIDE\LEVODOPA [Suspect]
     Active Substance: BENSERAZIDE HYDROCHLORIDE\LEVODOPA
     Indication: Parkinson^s disease
     Dosage: UNK
     Route: 048

REACTIONS (3)
  - Hallucination [Recovered/Resolved]
  - Confusional state [Recovered/Resolved]
  - Hyperkinesia [Not Recovered/Not Resolved]

NARRATIVE: CASE EVENT DATE: 20230309
